FAERS Safety Report 18004006 (Version 1)
Quarter: 2020Q3

REPORT INFORMATION
  Report Type: Spontaneous
  Country: RS (occurrence: RS)
  Receive Date: 20200710
  Receipt Date: 20200710
  Transmission Date: 20201103
  Serious: Yes (Hospitalization)
  Sender: FDA-Public Use
  Company Number: RS-SUN PHARMACEUTICAL INDUSTRIES LTD-2020R1-252772

PATIENT
  Age: 18 Month
  Sex: Female
  Weight: 16 kg

DRUGS (1)
  1. DESMOPRESSIN [Suspect]
     Active Substance: DESMOPRESSIN
     Indication: HORMONE REPLACEMENT THERAPY
     Dosage: UNK
     Route: 045

REACTIONS (3)
  - Overdose [Unknown]
  - Somnolence [Unknown]
  - Vomiting [Unknown]
